FAERS Safety Report 21493358 (Version 3)
Quarter: 2023Q2

REPORT INFORMATION
  Report Type: Spontaneous
  Country: US (occurrence: US)
  Receive Date: 20221021
  Receipt Date: 20230518
  Transmission Date: 20230721
  Serious: No
  Sender: FDA-Public Use
  Company Number: US-INCYTE CORPORATION-2022IN009885

PATIENT

DRUGS (11)
  1. JAKAFI [Suspect]
     Active Substance: RUXOLITINIB
     Indication: Polycythaemia vera
     Dosage: 10 MILLIGRAM (BID ON MONDAY AND FRIDAY, QD ON ALL OTHER DAYS)
     Route: 048
     Dates: start: 20220708
  2. JAKAFI [Suspect]
     Active Substance: RUXOLITINIB
     Dosage: 10 MILLIGRAM (BID ON MONDAY AND FRIDAY, QD ON SATURDAY AND SUNDAY))
     Route: 048
  3. JAKAFI [Suspect]
     Active Substance: RUXOLITINIB
     Dosage: 10 MILLIGRAM (BID ON MONDAY TO FRIDAY, QD ON SATURDAY AND SUNDAY))
     Route: 048
  4. CLEARLAX [Concomitant]
     Active Substance: POLYETHYLENE GLYCOL 3350
     Indication: Product used for unknown indication
     Dosage: 17 GRAM/SCOOP
     Route: 065
  5. AMITRIPTYLINE [Concomitant]
     Active Substance: AMITRIPTYLINE
     Indication: Product used for unknown indication
     Dosage: 50 MILLIGRAM
     Route: 065
  6. ASPIRIN [Concomitant]
     Active Substance: ASPIRIN
     Indication: Product used for unknown indication
     Dosage: 81 MILLIGRAM
     Route: 065
  7. DOCUSATE SOD [Concomitant]
     Indication: Product used for unknown indication
     Dosage: 100 MILLIGRAM
     Route: 065
  8. HYDROCHLOROTHIAZIDE [Concomitant]
     Active Substance: HYDROCHLOROTHIAZIDE
     Indication: Product used for unknown indication
     Dosage: 25 MILLIGRAM
     Route: 065
  9. LOVASTATIN [Concomitant]
     Active Substance: LOVASTATIN
     Indication: Product used for unknown indication
     Dosage: 20 MILLIGRAM
     Route: 065
  10. CALCIUM [Concomitant]
     Active Substance: CALCIUM
     Indication: Product used for unknown indication
     Dosage: 500 MILLIGRAM
     Route: 065
  11. MIRALAX [Concomitant]
     Active Substance: POLYETHYLENE GLYCOL 3350
     Indication: Product used for unknown indication
     Dosage: 17 GRAM/SCOOP
     Route: 065

REACTIONS (8)
  - Vomiting [Unknown]
  - Stress [Unknown]
  - Constipation [Unknown]
  - Nausea [Unknown]
  - Diarrhoea [Unknown]
  - Dizziness [Unknown]
  - Dyspnoea [Unknown]
  - Urinary tract infection [Unknown]
